FAERS Safety Report 6076349-6 (Version None)
Quarter: 2009Q1

REPORT INFORMATION
  Report Type: 
  Country: None (occurrence: None)
  Receive Date: 20090209
  Receipt Date: 20090123
  Transmission Date: 20090719
  Serious: Yes (Hospitalization)
  Sender: FDA-Public Use
  Company Number: 8042043

PATIENT
  Age: 18 Year
  Sex: Male

DRUGS (5)
  1. LORTAB [Suspect]
     Indication: PAIN
     Dosage: PO
     Route: 048
  2. HYDROXYCUT [Suspect]
     Indication: WEIGHT CONTROL
     Dosage: 4 DF PO
     Route: 048
  3. NAPROXEN SODIUM [Concomitant]
  4. CYCLOBENZAPRINE [Concomitant]
  5. ADDERALL 10 [Concomitant]

REACTIONS (7)
  - ALANINE AMINOTRANSFERASE INCREASED [None]
  - ASPARTATE AMINOTRANSFERASE INCREASED [None]
  - BLOOD ALKALINE PHOSPHATASE INCREASED [None]
  - DRUG SCREEN POSITIVE [None]
  - PAIN IN EXTREMITY [None]
  - RHABDOMYOLYSIS [None]
  - URINE OUTPUT DECREASED [None]
